FAERS Safety Report 12382259 (Version 1)
Quarter: 2016Q2

REPORT INFORMATION
  Report Type: Spontaneous
  Country: FR (occurrence: FR)
  Receive Date: 20160518
  Receipt Date: 20160518
  Transmission Date: 20160815
  Serious: Yes (Other)
  Sender: FDA-Public Use
  Company Number: FR-OTSUKA-2016_006518

PATIENT
  Age: 35 Year
  Sex: Male
  Weight: 110 kg

DRUGS (6)
  1. LEPONEX [Concomitant]
     Active Substance: CLOZAPINE
     Indication: SCHIZOPHRENIA
     Dosage: UNK
     Route: 065
     Dates: end: 201509
  2. ABILIFY MAINTENA [Suspect]
     Active Substance: ARIPIPRAZOLE
     Dosage: 400 MG,EVERY 25 DAYS
     Route: 030
  3. NOZINAN [Concomitant]
     Active Substance: LEVOMEPROMAZINE
     Indication: SCHIZOAFFECTIVE DISORDER
     Dosage: 100 MG, UNK
     Route: 048
     Dates: start: 201602
  4. ABILIFY MAINTENA [Suspect]
     Active Substance: ARIPIPRAZOLE
     Indication: SCHIZOAFFECTIVE DISORDER
     Dosage: 400 MG,EVERY 28 DAYS
     Route: 030
     Dates: start: 201504
  5. SERESTA [Concomitant]
     Active Substance: OXAZEPAM
     Indication: SCHIZOAFFECTIVE DISORDER
     Dosage: 75 MG, UNK
     Route: 048
     Dates: start: 201501
  6. DEPAKOTE [Concomitant]
     Active Substance: DIVALPROEX SODIUM
     Indication: SCHIZOAFFECTIVE DISORDER
     Dosage: 2 G, UNK
     Route: 048
     Dates: start: 2010

REACTIONS (5)
  - Schizoaffective disorder [Recovered/Resolved]
  - Inappropriate schedule of drug administration [Unknown]
  - Therapeutic response decreased [Recovered/Resolved]
  - Off label use [Not Recovered/Not Resolved]
  - Drug ineffective for unapproved indication [Recovered/Resolved]

NARRATIVE: CASE EVENT DATE: 201504
